FAERS Safety Report 16339362 (Version 1)
Quarter: 2019Q2

REPORT INFORMATION
  Report Type: Spontaneous
  Country: US (occurrence: US)
  Receive Date: 20190521
  Receipt Date: 20190521
  Transmission Date: 20190711
  Serious: No
  Sender: FDA-Public Use
  Company Number: US-SA-2019SA133370

PATIENT
  Age: 39 Year
  Sex: Female

DRUGS (1)
  1. LOVENOX [Suspect]
     Active Substance: ENOXAPARIN SODIUM
     Dosage: 80 MG, BID
     Route: 065

REACTIONS (3)
  - Skin disorder [Unknown]
  - Tenderness [Unknown]
  - Pain [Unknown]
